FAERS Safety Report 4489306-8 (Version None)
Quarter: 2004Q4

REPORT INFORMATION
  Report Type: 
  Country: None (occurrence: None)
  Receive Date: 20041026
  Receipt Date: 20041013
  Transmission Date: 20050328
  Serious: Yes (Hospitalization, Other)
  Sender: FDA-Public Use
  Company Number: 2004073728

PATIENT
  Age: 89 Year
  Sex: Female

DRUGS (9)
  1. UNSYN S          (AMPICILLIN, SULBACTAM) [Suspect]
     Indication: PNEUMONIA
     Dosage: 6 GRAM (2 IN 1 D), INTRAVENOUS
     Route: 042
     Dates: start: 20040927, end: 20040929
  2. OMEPRAZOLE [Concomitant]
  3. ISOSORBIDE DINITRATE (ISOSRBIDE DINITRATE) [Concomitant]
  4. HEPARIN [Concomitant]
  5. CAPTOPRIL [Concomitant]
  6. NICARDIPINE HCL [Concomitant]
  7. ISOSORBIDE DINITRATE [Concomitant]
  8. CIMETIDINE [Concomitant]
  9. TEPRENONE (TEPRENONE) [Concomitant]

REACTIONS (5)
  - C-REACTIVE PROTEIN INCREASED [None]
  - ELECTROCARDIOGRAM ST-T CHANGE [None]
  - MELAENA [None]
  - PLATELET COUNT DECREASED [None]
  - WHITE BLOOD CELL COUNT INCREASED [None]
